FAERS Safety Report 11542591 (Version 1)
Quarter: 2015Q3

REPORT INFORMATION
  Report Type: Spontaneous
  Country: US (occurrence: US)
  Receive Date: 20150903
  Receipt Date: 20150903
  Transmission Date: 20151125
  Serious: No
  Sender: FDA-Public Use
  Company Number: US-ELI_LILLY_AND_COMPANY-US201111001219

PATIENT
  Sex: Female

DRUGS (1)
  1. HUMALOG MIX75/25 [Suspect]
     Active Substance: INSULIN LISPRO
     Indication: TYPE 2 DIABETES MELLITUS
     Dosage: 32 U, BID
     Dates: start: 201011

REACTIONS (6)
  - Visual acuity reduced [Recovering/Resolving]
  - Lacrimation increased [Unknown]
  - Intraocular pressure increased [Recovered/Resolved]
  - Eye irritation [Unknown]
  - Cataract [Unknown]
  - Blood glucose increased [Unknown]
